FAERS Safety Report 22263567 (Version 1)
Quarter: 2023Q2

REPORT INFORMATION
  Report Type: Spontaneous
  Country: US (occurrence: US)
  Receive Date: 20230428
  Receipt Date: 20230428
  Transmission Date: 20230722
  Serious: Yes (Other)
  Sender: FDA-Public Use
  Company Number: US-ROCHE-3334986

PATIENT
  Sex: Male

DRUGS (3)
  1. VALGANCICLOVIR HYDROCHLORIDE [Suspect]
     Active Substance: VALGANCICLOVIR HYDROCHLORIDE
     Indication: Renal transplant
     Dosage: BID?DAILY DOSE: 900 MILLIGRAM
  2. VALGANCICLOVIR HYDROCHLORIDE [Suspect]
     Active Substance: VALGANCICLOVIR HYDROCHLORIDE
     Indication: Lung transplant
     Dosage: BID?DAILY DOSE: 900 MILLIGRAM
  3. VALGANCICLOVIR HYDROCHLORIDE [Suspect]
     Active Substance: VALGANCICLOVIR HYDROCHLORIDE
     Indication: Pancreas transplant
     Dosage: BID?DAILY DOSE: 900 MILLIGRAM

REACTIONS (3)
  - Cytomegalovirus infection [Unknown]
  - Illness [Unknown]
  - Product prescribing error [Unknown]
